FAERS Safety Report 18257466 (Version 1)
Quarter: 2020Q3

REPORT INFORMATION
  Report Type: Spontaneous
  Country: IT (occurrence: IT)
  Receive Date: 20200911
  Receipt Date: 20200911
  Transmission Date: 20201103
  Serious: Yes (Other)
  Sender: FDA-Public Use
  Company Number: IT-ASTRAZENECA-2020SF14794

PATIENT
  Age: 42 Year
  Sex: Female
  Weight: 52 kg

DRUGS (1)
  1. FASENRA [Suspect]
     Active Substance: BENRALIZUMAB
     Indication: ASTHMA
     Dosage: 30.0MG EVERY CYCLE
     Route: 058
     Dates: start: 20200217, end: 20200217

REACTIONS (5)
  - Myalgia [Recovered/Resolved]
  - Malaise [Recovered/Resolved]
  - Abdominal pain [Recovered/Resolved]
  - Asthenia [Recovered/Resolved]
  - Pyrexia [Recovered/Resolved]

NARRATIVE: CASE EVENT DATE: 20200217
